FAERS Safety Report 7293840-5 (Version None)
Quarter: 2011Q1

REPORT INFORMATION
  Report Type: 
  Country: None (occurrence: None)
  Receive Date: 20110202
  Receipt Date: 20110125
  Transmission Date: 20110831
  Serious: Yes (Death, Hospitalization)
  Sender: FDA-Public Use
  Company Number: WAES 1101USA03461

PATIENT
  Age: 52 Year
  Sex: Male

DRUGS (2)
  1. TAB ISENTRESS (RALTEGRAVIR POTASSIUM) [Suspect]
     Indication: HIV INFECTION
     Dosage: PO
     Route: 048
     Dates: start: 20101109, end: 20101224
  2. ALUVIA (LOPINAVLR (+) RITONAVIR) [Suspect]
     Dates: start: 20101109, end: 20101224

REACTIONS (1)
  - PNEUMONIA BACTERIAL [None]
